FAERS Safety Report 4594875-3 (Version None)
Quarter: 2005Q1

REPORT INFORMATION
  Report Type: 
  Country: None (occurrence: None)
  Receive Date: 20050223
  Receipt Date: 20050203
  Transmission Date: 20050727
  Serious: Yes (Death)
  Sender: FDA-Public Use
  Company Number: B0370182A

PATIENT

DRUGS (2)
  1. ALKERAN [Suspect]
  2. GRANULOCYTE COL. STEM. FACT [Concomitant]

REACTIONS (4)
  - COMPLICATIONS OF TRANSPLANT SURGERY [None]
  - MULTI-ORGAN FAILURE [None]
  - SEPSIS [None]
  - STEM CELL TRANSPLANT [None]
